FAERS Safety Report 6075637-7 (Version None)
Quarter: 2009Q1

REPORT INFORMATION
  Report Type: 
  Country: None (occurrence: None)
  Receive Date: 20090210
  Receipt Date: 20090210
  Transmission Date: 20090719
  Serious: Yes (Hospitalization)
  Sender: FDA-Public Use
  Company Number: None

PATIENT
  Sex: Male
  Weight: 84.4 kg

DRUGS (2)
  1. CYTARABINE [Suspect]
     Dosage: 33600 MG
  2. ETOPOSIDE [Suspect]
     Dosage: 3376 MG

REACTIONS (27)
  - ABSCESS [None]
  - ANOXIA [None]
  - BACTERAEMIA [None]
  - BACTERIA BLOOD IDENTIFIED [None]
  - BRAIN OEDEMA [None]
  - CARDIAC ARREST [None]
  - CEREBRAL HAEMORRHAGE [None]
  - CHOLECYSTITIS [None]
  - CONVULSION [None]
  - DEPRESSED LEVEL OF CONSCIOUSNESS [None]
  - DIARRHOEA [None]
  - FAECES DISCOLOURED [None]
  - HYPERNATRAEMIA [None]
  - INTESTINAL MUCOSAL HYPERTROPHY [None]
  - KLEBSIELLA INFECTION [None]
  - LUNG INFILTRATION [None]
  - MELAENA [None]
  - PANCYTOPENIA [None]
  - PERITONEAL EFFUSION [None]
  - PUPILLARY REFLEX IMPAIRED [None]
  - PYREXIA [None]
  - RECTAL HAEMORRHAGE [None]
  - REFUSAL OF TREATMENT BY RELATIVE [None]
  - SINUS TACHYCARDIA [None]
  - STAPHYLOCOCCAL INFECTION [None]
  - UNRESPONSIVE TO STIMULI [None]
  - VOMITING [None]
